FAERS Safety Report 5179673-4 (Version None)
Quarter: 2006Q4

REPORT INFORMATION
  Report Type: 
  Country: None (occurrence: None)
  Receive Date: 20061211
  Receipt Date: 20061204
  Transmission Date: 20070319
  Serious: Yes (Death)
  Sender: FDA-Public Use
  Company Number: 163-20785-06120101

PATIENT
  Age: 71 Year
  Sex: Male

DRUGS (13)
  1. THALOMID [Suspect]
     Indication: MULTIPLE MYELOMA
     Dosage: SEE IMAGE
     Route: 048
     Dates: start: 20060925, end: 20061024
  2. THALOMID [Suspect]
     Indication: MULTIPLE MYELOMA
     Dosage: SEE IMAGE
     Route: 048
     Dates: start: 20061024, end: 20061124
  3. MELPHALAN (MELPHALAN) [Suspect]
     Indication: DRUG USE FOR UNKNOWN INDICATION
  4. PREDNISONE TAB [Concomitant]
  5. B-12 [Concomitant]
  6. METOPROLOL SUCCINATE [Concomitant]
  7. PAXIL [Concomitant]
  8. LORTAB [Concomitant]
  9. PROCARDIA [Concomitant]
  10. DURAGESIC-100 [Concomitant]
  11. MILK OF MAGNESIA TAB [Concomitant]
  12. COLACE (DOCUSATE SODIUM) [Concomitant]
  13. IRON (IRON) [Concomitant]

REACTIONS (2)
  - RESPIRATORY FAILURE [None]
  - VERTIGO [None]
